FAERS Safety Report 8107231-8 (Version None)
Quarter: 2012Q1

REPORT INFORMATION
  Report Type: 
  Country: None (occurrence: None)
  Receive Date: 20120202
  Receipt Date: 20120202
  Transmission Date: 20120608
  Serious: Yes (Life-Threatening)
  Sender: FDA-Public Use
  Company Number: IT-SANOFI-AVENTIS-2011SA026115

PATIENT
  Age: 52 Year
  Sex: Female

DRUGS (3)
  1. RIFADIN [Suspect]
     Route: 048
     Dates: start: 20110205, end: 20110215
  2. SODIUM FERRIC GLUCONATE COMPLEX [Concomitant]
     Route: 042
  3. LEVOFLOXACIN [Suspect]
     Route: 048
     Dates: start: 20110205, end: 20110215

REACTIONS (4)
  - PYREXIA [None]
  - AGRANULOCYTOSIS [None]
  - THROMBOCYTOSIS [None]
  - ANAEMIA [None]
